FAERS Safety Report 5145237-1 (Version None)
Quarter: 2006Q4

REPORT INFORMATION
  Report Type: 
  Country: None (occurrence: None)
  Receive Date: 20061107
  Receipt Date: 20061026
  Transmission Date: 20070319
  Serious: Yes (Hospitalization)
  Sender: FDA-Public Use
  Company Number: GB-ROCHE-468916

PATIENT
  Age: 81 Year
  Sex: Female

DRUGS (9)
  1. XENICAL [Suspect]
     Indication: DRUG USE FOR UNKNOWN INDICATION
     Route: 048
     Dates: start: 20060602
  2. ASPIRIN [Concomitant]
     Route: 048
     Dates: end: 20060619
  3. CITALOPRAM [Concomitant]
     Route: 048
  4. ACETAMINOPHEN W/ CODEINE [Concomitant]
     Route: 048
  5. ENALAPRIL MALEATE [Concomitant]
     Route: 048
  6. LACTULOSE [Concomitant]
     Route: 048
  7. NIFEDIPINE [Concomitant]
     Route: 048
  8. SENNA [Concomitant]
     Route: 048
  9. SIMVASTATIN [Concomitant]
     Route: 048

REACTIONS (1)
  - PLATELET COUNT DECREASED [None]
